FAERS Safety Report 9301399 (Version 1)
Quarter: 2013Q2

REPORT INFORMATION
  Report Type: Spontaneous
  Country: ZA (occurrence: ZA)
  Receive Date: 20130521
  Receipt Date: 20130521
  Transmission Date: 20140414
  Serious: Yes (Hospitalization)
  Sender: FDA-Public Use
  Company Number: ZA-ABBOTT-13P-143-1090423-00

PATIENT
  Sex: Female

DRUGS (2)
  1. HUMIRA [Suspect]
     Indication: CROHN^S DISEASE
     Route: 058
     Dates: start: 20130416, end: 20130430
  2. HUMIRA [Suspect]
     Route: 058

REACTIONS (2)
  - Rotator cuff syndrome [Recovering/Resolving]
  - Musculoskeletal discomfort [Recovering/Resolving]
